FAERS Safety Report 16057479 (Version 1)
Quarter: 2019Q1

REPORT INFORMATION
  Report Type: Report from Study
  Country: None (occurrence: US)
  Receive Date: 20190311
  Receipt Date: 20190311
  Transmission Date: 20190418
  Serious: Yes (Other)
  Sender: FDA-Public Use
  Company Number: US-ABBVIE-19S-163-2672110-00

PATIENT
  Sex: Male

DRUGS (1)
  1. LUPRON [Suspect]
     Active Substance: LEUPROLIDE ACETATE
     Indication: PRODUCT USED FOR UNKNOWN INDICATION
     Route: 050

REACTIONS (4)
  - Upper limb fracture [Unknown]
  - Wrist fracture [Unknown]
  - Ankle fracture [Unknown]
  - Foot fracture [Unknown]

NARRATIVE: CASE EVENT DATE: 2019
